FAERS Safety Report 23426129 (Version 1)
Quarter: 2024Q1

REPORT INFORMATION
  Report Type: Spontaneous
  Country: FR (occurrence: FR)
  Receive Date: 20240122
  Receipt Date: 20240122
  Transmission Date: 20240410
  Serious: Yes (Hospitalization, Other)
  Sender: FDA-Public Use
  Company Number: FR-AFSSAPS-PB2024000014

PATIENT
  Age: 14 Year
  Sex: Female
  Weight: 58 kg

DRUGS (1)
  1. ACETAMINOPHEN [Suspect]
     Active Substance: ACETAMINOPHEN
     Indication: Product used for unknown indication
     Dosage: 16 GRAM IN 1 DOSE
     Route: 048
     Dates: start: 20231208

REACTIONS (2)
  - Poisoning deliberate [Unknown]
  - Somnolence [Unknown]

NARRATIVE: CASE EVENT DATE: 20231208
